FAERS Safety Report 4703896-9 (Version None)
Quarter: 2005Q2

REPORT INFORMATION
  Report Type: 
  Country: None (occurrence: None)
  Receive Date: 20050630
  Receipt Date: 20020219
  Transmission Date: 20051028
  Serious: Yes (Life-Threatening, Hospitalization)
  Sender: FDA-Public Use
  Company Number: SE-AMGEN-02020567

PATIENT
  Sex: Female

DRUGS (4)
  1. ENBREL [Suspect]
     Indication: RHEUMATOID ARTHRITIS
     Dosage: UNKNOWN
     Route: 058
     Dates: start: 19991004, end: 20011001
  2. ENBREL [Suspect]
  3. METOPROLOL [Concomitant]
  4. KLIOGEST [Concomitant]

REACTIONS (1)
  - AGRANULOCYTOSIS [None]
